FAERS Safety Report 9416137 (Version 1)
Quarter: 2013Q3

REPORT INFORMATION
  Report Type: Spontaneous
  Country: JP (occurrence: JP)
  Receive Date: 20130724
  Receipt Date: 20130724
  Transmission Date: 20140515
  Serious: Yes (Death)
  Sender: FDA-Public Use
  Company Number: JP-ROCHE-1251861

PATIENT
  Age: 88 Year
  Sex: Male
  Weight: 55 kg

DRUGS (10)
  1. AVASTIN [Suspect]
     Indication: COLON CANCER RECURRENT
     Route: 041
     Dates: start: 20130417, end: 20130619
  2. IRINOTECAN HYDROCHLORIDE [Concomitant]
     Indication: COLON CANCER RECURRENT
     Route: 041
     Dates: start: 20130327, end: 20130619
  3. TS-1 [Concomitant]
     Indication: COLON CANCER RECURRENT
     Route: 048
     Dates: start: 20130327, end: 20130701
  4. GRANISETRON HYDROCHLORIDE [Concomitant]
     Indication: PROPHYLAXIS OF NAUSEA AND VOMITING
     Route: 065
     Dates: start: 20130327, end: 20130619
  5. DEXART [Concomitant]
     Indication: PROPHYLAXIS OF NAUSEA AND VOMITING
     Route: 065
     Dates: start: 20130327, end: 20130619
  6. AMLODIN [Concomitant]
     Dosage: DOSAGE IS UNCERTAIN.
     Route: 048
  7. MAGLAX [Concomitant]
     Dosage: DOSAGE IS UNCERTAIN.
     Route: 048
  8. CEROCRAL [Concomitant]
     Dosage: DOSAGE IS UNCERTAIN.
     Route: 048
  9. CALONAL [Concomitant]
     Indication: PAIN
     Route: 048
     Dates: start: 20130308, end: 20130701
  10. LANSOPRAZOLE [Concomitant]
     Indication: PROPHYLAXIS
     Route: 048
     Dates: start: 20130307, end: 20130701

REACTIONS (1)
  - Mesenteric arterial occlusion [Fatal]
